FAERS Safety Report 7960070-0 (Version None)
Quarter: 2011Q4

REPORT INFORMATION
  Report Type: 
  Country: None (occurrence: None)
  Receive Date: 20111206
  Receipt Date: 20111128
  Transmission Date: 20120403
  Serious: Yes (Other)
  Sender: FDA-Public Use
  Company Number: PHHY2011DE56937

PATIENT
  Sex: Female

DRUGS (2)
  1. PREGABALIN [Concomitant]
     Indication: PARAESTHESIA
     Dosage: 50 MG PER DAY
     Route: 048
     Dates: start: 20110505
  2. GILENYA [Suspect]
     Indication: MULTIPLE SCLEROSIS
     Dosage: 0.5 MG, QD
     Route: 048
     Dates: start: 20110621, end: 20110627

REACTIONS (8)
  - DECREASED APPETITE [None]
  - DIARRHOEA [None]
  - URTICARIA [None]
  - VULVOVAGINAL MYCOTIC INFECTION [None]
  - WEIGHT DECREASED [None]
  - TUNNEL VISION [None]
  - RASH [None]
  - PRURITUS [None]
